FAERS Safety Report 9975779 (Version 2)
Quarter: 2014Q1

REPORT INFORMATION
  Report Type: Spontaneous
  Country: US (occurrence: US)
  Receive Date: 20140306
  Receipt Date: 20140327
  Transmission Date: 20141002
  Serious: Yes (Death)
  Sender: FDA-Public Use
  Company Number: US-B.I. PHARMACEUTICALS,INC./RIDGEFIELD-2014-BI-09675BP

PATIENT
  Age: 57 Year
  Sex: Male

DRUGS (7)
  1. SPIRIVA [Suspect]
     Indication: PRODUCT USED FOR UNKNOWN INDICATION
     Dosage: 18 MCG
     Route: 055
  2. LISINOPRIL HCTZ [Concomitant]
     Indication: HYPERTENSION
     Route: 065
  3. STATINS [Concomitant]
     Indication: BLOOD CHOLESTEROL INCREASED
     Route: 065
  4. ADVAIR DISKUS 500/50 [Concomitant]
     Route: 065
  5. FISH OIL [Concomitant]
     Indication: BLOOD CHOLESTEROL INCREASED
     Route: 065
  6. MULTIVITAMIN [Concomitant]
     Route: 065
  7. CALCIUM [Concomitant]
     Route: 065

REACTIONS (2)
  - Chronic obstructive pulmonary disease [Fatal]
  - Alcoholism [Fatal]
